FAERS Safety Report 5638694-5 (Version None)
Quarter: 2008Q1

REPORT INFORMATION
  Report Type: 
  Country: None (occurrence: None)
  Receive Date: 20080226
  Receipt Date: 20071031
  Transmission Date: 20080703
  Serious: No
  Sender: FDA-Public Use
  Company Number: A0691510A

PATIENT
  Sex: Female

DRUGS (2)
  1. IMITREX [Suspect]
     Indication: MIGRAINE
     Route: 042
     Dates: start: 19900101
  2. IMITREX [Suspect]
     Route: 048

REACTIONS (4)
  - NAUSEA [None]
  - PAIN [None]
  - PHARMACEUTICAL PRODUCT COMPLAINT [None]
  - VOMITING [None]
